FAERS Safety Report 24221293 (Version 1)
Quarter: 2024Q3

REPORT INFORMATION
  Report Type: Spontaneous
  Country: EE (occurrence: EE)
  Receive Date: 20240819
  Receipt Date: 20240819
  Transmission Date: 20241017
  Serious: Yes (Death, Other)
  Sender: NOVO NORDISK
  Company Number: EE-NOVOPROD-1266432

PATIENT
  Age: 44 Year
  Sex: Male

DRUGS (3)
  1. OZEMPIC [Suspect]
     Active Substance: SEMAGLUTIDE
     Indication: Overweight
     Dosage: 0.25 MG
     Dates: start: 202302
  2. OZEMPIC [Suspect]
     Active Substance: SEMAGLUTIDE
     Dosage: 1 MG
     Dates: start: 20230405
  3. OZEMPIC [Suspect]
     Active Substance: SEMAGLUTIDE
     Dosage: 0.5 MG

REACTIONS (2)
  - Gastric cancer [Fatal]
  - Off label use [Unknown]

NARRATIVE: CASE EVENT DATE: 20230101
